FAERS Safety Report 6081579-3 (Version None)
Quarter: 2009Q1

REPORT INFORMATION
  Report Type: 
  Country: None (occurrence: None)
  Receive Date: 20090218
  Receipt Date: 20090212
  Transmission Date: 20090719
  Serious: Yes (Life-Threatening, Hospitalization, Disabling, Other)
  Sender: FDA-Public Use
  Company Number: PHHY2008JP30002

PATIENT
  Sex: Female
  Weight: 49 kg

DRUGS (8)
  1. ICL670A ICL+DISTAB [Suspect]
     Indication: IRON OVERLOAD
     Dosage: 1000 MG /DAY
     Route: 048
     Dates: start: 20081017, end: 20081110
  2. BLOOD TRANSFUSION [Concomitant]
     Dosage: UNK
     Dates: start: 20070706, end: 20070926
  3. BLOOD CELLS [Concomitant]
     Dosage: 2 UNITS, EVERY TWO WEEKS
     Dates: start: 20081017, end: 20081110
  4. BLOOD CELLS [Concomitant]
     Dosage: 2 UNITS EVERY DAY
     Dates: start: 20081111, end: 20081120
  5. BLOOD CELLS [Concomitant]
     Dosage: 2 UNITS EVERY 2 WEEKS
     Dates: start: 20081120, end: 20081231
  6. PRIMOBOLAN [Concomitant]
     Dosage: 20 MG
     Route: 048
     Dates: start: 20081017, end: 20081110
  7. PYDOXAL [Concomitant]
     Dosage: 40 MG
     Dates: start: 20081017, end: 20081110
  8. DEPAS [Concomitant]
     Indication: INSOMNIA
     Dosage: 1 MG
     Route: 048
     Dates: start: 20081017, end: 20081110

REACTIONS (13)
  - BLOOD BILIRUBIN INCREASED [None]
  - BLOOD CREATININE INCREASED [None]
  - BLOOD LACTATE DEHYDROGENASE INCREASED [None]
  - BLOOD UREA INCREASED [None]
  - CONTINUOUS HAEMODIAFILTRATION [None]
  - GASTRIC ULCER HAEMORRHAGE [None]
  - GASTROINTESTINAL PERFORATION [None]
  - HAEMATEMESIS [None]
  - HAEMODIALYSIS [None]
  - OEDEMA [None]
  - RENAL FAILURE ACUTE [None]
  - SHOCK [None]
  - SURGERY [None]
